FAERS Safety Report 24222769 (Version 1)
Quarter: 2024Q3

REPORT INFORMATION
  Report Type: Spontaneous
  Country: US (occurrence: None)
  Receive Date: 20240816
  Receipt Date: 20240816
  Transmission Date: 20241016
  Serious: Yes (Other)
  Sender: Public
  Company Number: None

PATIENT
  Age: 53 Year
  Sex: Female
  Weight: 103.5 kg

DRUGS (7)
  1. BIOFREEZE OVERNIGHT RELIEF [Suspect]
     Active Substance: MENTHOL
     Indication: Myalgia
     Dosage: 3 OUNCE AT BEDTIME TOPICAL
     Route: 061
     Dates: start: 20240814, end: 20240815
  2. TAMOXIFEN [Concomitant]
     Active Substance: TAMOXIFEN
  3. LISINOPRIL [Concomitant]
     Active Substance: LISINOPRIL
  4. MELOXICAM [Concomitant]
     Active Substance: MELOXICAM
  5. HYDROCHLOROTHIAZIDE [Concomitant]
     Active Substance: HYDROCHLOROTHIAZIDE
  6. GABAPENTIN [Concomitant]
     Active Substance: GABAPENTIN
  7. VITAMIN D3 [Concomitant]
     Active Substance: CHOLECALCIFEROL

REACTIONS (4)
  - Skin burning sensation [None]
  - Hair disorder [None]
  - Application site pain [None]
  - Application site pain [None]

NARRATIVE: CASE EVENT DATE: 20240816
